FAERS Safety Report 5373703-2 (Version None)
Quarter: 2007Q2

REPORT INFORMATION
  Report Type: 
  Country: None (occurrence: None)
  Receive Date: 20070615
  Receipt Date: 20060724
  Transmission Date: 20071010
  Serious: Yes (Other)
  Sender: FDA-Public Use
  Company Number: 200616216US

PATIENT
  Age: 56 Year
  Sex: Male

DRUGS (2)
  1. LANTUS [Suspect]
     Indication: DIABETES MELLITUS NON-INSULIN-DEPENDENT
     Dosage: 20 U
     Dates: start: 20060701
  2. INSULIN (NOVOLIN /00030501/) [Concomitant]

REACTIONS (2)
  - HYPERGLYCAEMIA [None]
  - NO ADVERSE EFFECT [None]
